FAERS Safety Report 13331603 (Version 1)
Quarter: 2017Q1

REPORT INFORMATION
  Report Type: Spontaneous
  Country: US (occurrence: US)
  Receive Date: 20170313
  Receipt Date: 20170313
  Transmission Date: 20170428
  Serious: Yes (Other)
  Sender: FDA-Public Use
  Company Number: None

PATIENT
  Age: 38 Year
  Sex: Female

DRUGS (1)
  1. GLEEVEC [Suspect]
     Active Substance: IMATINIB MESYLATE
     Indication: CHRONIC MYELOID LEUKAEMIA
     Route: 048
     Dates: start: 20160801

REACTIONS (5)
  - Constipation [None]
  - Arthralgia [None]
  - Alopecia [None]
  - Tooth fracture [None]
  - Pain in jaw [None]

NARRATIVE: CASE EVENT DATE: 20170310
